FAERS Safety Report 20070935 (Version 7)
Quarter: 2022Q2

REPORT INFORMATION
  Report Type: Report from Study
  Country: CA (occurrence: CA)
  Receive Date: 20211115
  Receipt Date: 20220629
  Transmission Date: 20220721
  Serious: Yes (Hospitalization, Other)
  Sender: FDA-Public Use
  Company Number: CA-OTSUKA-2021_030368

PATIENT
  Age: 68 Year
  Sex: Female

DRUGS (3)
  1. CEDAZURIDINE\DECITABINE [Suspect]
     Active Substance: CEDAZURIDINE\DECITABINE
     Indication: Myelodysplastic syndrome
     Dosage: (35 MG DECITABINE AND 100 MG CEDAZURIDINE) 5-DAY CYCLE
     Route: 065
     Dates: start: 20210808
  2. CEDAZURIDINE\DECITABINE [Suspect]
     Active Substance: CEDAZURIDINE\DECITABINE
     Dosage: 135 MG (35 MG DECITABINE AND 100 MG) 3 TABLETS IN A 28 DAY CYCLE
     Route: 065
     Dates: start: 20210927
  3. CEDAZURIDINE\DECITABINE [Suspect]
     Active Substance: CEDAZURIDINE\DECITABINE
     Dosage: UNK
     Route: 065
     Dates: start: 20210715

REACTIONS (13)
  - Faecaloma [Unknown]
  - Full blood count abnormal [Unknown]
  - Agranulocytosis [Unknown]
  - Abdominal pain [Unknown]
  - Proctalgia [Recovered/Resolved]
  - Anaemia [Unknown]
  - Iron overload [Recovering/Resolving]
  - Gastrointestinal disorder [Unknown]
  - Constipation [Unknown]
  - Pain [Unknown]
  - Diarrhoea [Unknown]
  - Product use issue [Unknown]
  - Drug ineffective [Unknown]

NARRATIVE: CASE EVENT DATE: 20210801
